FAERS Safety Report 4428198-X (Version None)
Quarter: 2004Q3

REPORT INFORMATION
  Report Type: 
  Country: None (occurrence: None)
  Receive Date: 20040726
  Receipt Date: 20040316
  Transmission Date: 20050211
  Serious: No
  Sender: FDA-Public Use
  Company Number: USA040362267

PATIENT
  Age: 72 Year
  Sex: Female
  Weight: 53 kg

DRUGS (4)
  1. FORTEO [Suspect]
     Indication: OSTEOPOROSIS
     Dates: start: 20040204, end: 20040313
  2. VIOXX [Concomitant]
  3. VITAMIN E [Concomitant]
  4. PLAQUENIL [Concomitant]

REACTIONS (2)
  - APHTHOUS STOMATITIS [None]
  - STOMATITIS [None]
